FAERS Safety Report 11385831 (Version 2)
Quarter: 2015Q3

REPORT INFORMATION
  Report Type: Report from Study
  Country: US (occurrence: US)
  Receive Date: 20150817
  Receipt Date: 20150909
  Transmission Date: 20151125
  Serious: Yes (Other)
  Sender: FDA-Public Use
  Company Number: US-ROCHE-1614151

PATIENT
  Sex: Female

DRUGS (4)
  1. AVASTIN [Suspect]
     Active Substance: BEVACIZUMAB
     Indication: MACULAR DEGENERATION
     Dosage: LEFT EYE ONLY
     Route: 050
     Dates: start: 201304, end: 201502
  2. PRESERVISION AREDS [Concomitant]
     Active Substance: MINERALS\VITAMINS
     Indication: MACULAR DEGENERATION
     Dosage: 1 SOFT GEL TABLET TWICE A DAY
     Route: 065
  3. GLIPIZIDE. [Concomitant]
     Active Substance: GLIPIZIDE
     Indication: TYPE 2 DIABETES MELLITUS
     Route: 065
  4. LOSARTAN. [Concomitant]
     Active Substance: LOSARTAN
     Indication: BLOOD PRESSURE MEASUREMENT
     Dosage: FOR 3 YEARS
     Route: 065

REACTIONS (7)
  - Scar [Not Recovered/Not Resolved]
  - Ocular hyperaemia [Unknown]
  - Haemorrhage [Not Recovered/Not Resolved]
  - Off label use [Unknown]
  - Lacrimation disorder [Unknown]
  - Visual field defect [Not Recovered/Not Resolved]
  - Vision blurred [Unknown]
